FAERS Safety Report 19401953 (Version 1)
Quarter: 2021Q2

REPORT INFORMATION
  Report Type: Spontaneous
  Country: US (occurrence: US)
  Receive Date: 20210611
  Receipt Date: 20210611
  Transmission Date: 20210717
  Serious: No
  Sender: FDA-Public Use
  Company Number: US-STRIDES ARCOLAB LIMITED-2021SP005251

PATIENT
  Age: 61 Year
  Sex: Female

DRUGS (8)
  1. PREDNISOLONE. [Suspect]
     Active Substance: PREDNISOLONE
     Indication: PSORIASIS
     Dosage: 1 MILLIGRAM/KILOGRAM/DAY
     Route: 065
  2. PREDNISOLONE. [Suspect]
     Active Substance: PREDNISOLONE
     Dosage: UNK DOSE TAPERED
     Route: 065
  3. PREDNISOLONE. [Suspect]
     Active Substance: PREDNISOLONE
     Dosage: UNK DOSE RESTARTED
     Route: 065
  4. CLOBETASOL [Concomitant]
     Active Substance: CLOBETASOL
     Indication: RASH PRURITIC
     Dosage: UNK
     Route: 065
  5. ACITRETIN. [Suspect]
     Active Substance: ACITRETIN
     Indication: PRODUCT USED FOR UNKNOWN INDICATION
     Dosage: 25 MILLIGRAM/DAY
     Route: 065
  6. RISANKIZUMAB RZAA [Concomitant]
     Indication: PSORIASIS
     Dosage: 150 MILLIGRAM ON WEEK 0
     Route: 058
  7. RISANKIZUMAB RZAA [Concomitant]
     Dosage: 150 MILLIGRAM ON WEEK 4
     Route: 058
  8. RISANKIZUMAB RZAA [Concomitant]
     Dosage: 150 MILLIGRAM ON EVERY 12 WEEKS
     Route: 058

REACTIONS (2)
  - Transaminases increased [Unknown]
  - Rebound psoriasis [Unknown]
